FAERS Safety Report 11648741 (Version 1)
Quarter: 2015Q4

REPORT INFORMATION
  Report Type: Spontaneous
  Country: US (occurrence: US)
  Receive Date: 20151021
  Receipt Date: 20151021
  Transmission Date: 20160304
  Serious: No
  Sender: FDA-Public Use
  Company Number: US-009507513-1510USA004433

PATIENT
  Sex: Female

DRUGS (1)
  1. BELSOMRA [Suspect]
     Active Substance: SUVOREXANT
     Indication: INSOMNIA
     Dosage: TOOK HALF OF THE 5 MG TABLET DURING THE MIDDLE OF THE NIGHT
     Route: 048

REACTIONS (3)
  - Inappropriate schedule of drug administration [Unknown]
  - Somnolence [Unknown]
  - Wrong technique in product usage process [Unknown]
